FAERS Safety Report 17360668 (Version 2)
Quarter: 2020Q1

REPORT INFORMATION
  Report Type: Spontaneous
  Country: US (occurrence: US)
  Receive Date: 20200203
  Receipt Date: 20200228
  Transmission Date: 20200409
  Serious: No
  Sender: FDA-Public Use
  Company Number: US-GLAXOSMITHKLINE-US2020014040

PATIENT
  Age: 84 Year
  Sex: Female

DRUGS (1)
  1. ADVAIR HFA [Suspect]
     Active Substance: FLUTICASONE PROPIONATE\SALMETEROL XINAFOATE
     Indication: PRODUCT USED FOR UNKNOWN INDICATION
     Dosage: 2 PUFF(S), BID
     Route: 055

REACTIONS (7)
  - Wrong technique in product usage process [Unknown]
  - Multiple allergies [Unknown]
  - Underdose [Unknown]
  - Nasopharyngitis [Unknown]
  - Product complaint [Unknown]
  - Malaise [Unknown]
  - Drug ineffective [Unknown]
